FAERS Safety Report 18923312 (Version 1)
Quarter: 2021Q1

REPORT INFORMATION
  Report Type: Spontaneous
  Country: US (occurrence: US)
  Receive Date: 20210222
  Receipt Date: 20210222
  Transmission Date: 20210420
  Serious: No
  Sender: FDA-Public Use
  Company Number: US-JNJFOC-20210226989

PATIENT

DRUGS (1)
  1. WOMENS ROGAINE UNSCENTED [Suspect]
     Active Substance: MINOXIDIL
     Indication: ALOPECIA
     Dosage: DOSE: HALF A CAPFUL ONCE AT NIGHT FOR TWO NIGHTS?PRODUCT STOP DATE REPORTED TO BE 10?FEB?2021
     Route: 061
     Dates: start: 20210209

REACTIONS (2)
  - Application site pain [Recovering/Resolving]
  - Application site hypersensitivity [Recovering/Resolving]

NARRATIVE: CASE EVENT DATE: 20210210
